FAERS Safety Report 12383588 (Version 1)
Quarter: 2016Q2

REPORT INFORMATION
  Report Type: Spontaneous
  Country: UY (occurrence: UY)
  Receive Date: 20160518
  Receipt Date: 20160518
  Transmission Date: 20160815
  Serious: Yes (Other)
  Sender: FDA-Public Use
  Company Number: UY-BRISTOL-MYERS SQUIBB COMPANY-BMS-2016-036463

PATIENT
  Sex: Female

DRUGS (1)
  1. OPDIVO [Suspect]
     Active Substance: NIVOLUMAB
     Indication: NON-SMALL CELL LUNG CANCER
     Dosage: 3 MG/KG, Q2WK
     Route: 065

REACTIONS (3)
  - Endothelial dysfunction [Unknown]
  - Ileus [Unknown]
  - Renal cyst [Unknown]
